FAERS Safety Report 24740135 (Version 2)
Quarter: 2025Q3

REPORT INFORMATION
  Report Type: Spontaneous
  Country: EU (occurrence: EU)
  Receive Date: 20241216
  Receipt Date: 20250809
  Transmission Date: 20251021
  Serious: Yes (Life-Threatening, Other)
  Sender: ALEXION PHARMACEUTICALS
  Company Number: None

PATIENT
  Age: 63 Year
  Sex: Male

DRUGS (3)
  1. IMFINZI [Suspect]
     Active Substance: DURVALUMAB
     Indication: Lung neoplasm malignant
     Dates: start: 20240718, end: 20240718
  2. IMFINZI [Suspect]
     Active Substance: DURVALUMAB
     Dates: start: 20240801, end: 20240801
  3. IMFINZI [Suspect]
     Active Substance: DURVALUMAB
     Dates: start: 20240822, end: 20240822

REACTIONS (2)
  - Lung disorder [Not Recovered/Not Resolved]
  - Pulmonary toxicity [Not Recovered/Not Resolved]

NARRATIVE: CASE EVENT DATE: 20240905
